FAERS Safety Report 9687688 (Version 1)
Quarter: 2013Q4

REPORT INFORMATION
  Report Type: Spontaneous
  Country: US (occurrence: US)
  Receive Date: 20131114
  Receipt Date: 20131114
  Transmission Date: 20140711
  Serious: No
  Sender: FDA-Public Use
  Company Number: US-PFIZER INC-2013320508

PATIENT
  Age: 58 Year
  Sex: Male

DRUGS (13)
  1. INLYTA [Suspect]
     Indication: RENAL CANCER
     Dosage: 5 MG, UNK
     Dates: start: 20130204
  2. CALCIUM WITH VITAMIN D [Concomitant]
     Dosage: UNK
  3. DILAUDID [Concomitant]
     Dosage: UNK
  4. TAMSULOSIN HYDROCHLORIDE [Concomitant]
  5. GABAPENTIN [Concomitant]
     Dosage: UNK
  6. HUMALOG [Concomitant]
  7. LANTUS [Concomitant]
     Dosage: UNK
  8. LEVOTHYROXINE SODIUM [Concomitant]
     Dosage: UNK
  9. LISINOPRIL [Concomitant]
     Dosage: UNK
  10. MS CONTIN [Concomitant]
     Dosage: UNK
  11. NEURONTIN [Concomitant]
     Dosage: UNK
  12. NORVASC [Concomitant]
     Dosage: UNK
  13. PRILOSEC [Concomitant]
     Dosage: UNK

REACTIONS (3)
  - Pruritus [Unknown]
  - Erythema [Unknown]
  - Urticaria [Unknown]
